FAERS Safety Report 6857677-0 (Version None)
Quarter: 2010Q3

REPORT INFORMATION
  Report Type: 
  Country: None (occurrence: None)
  Receive Date: 20100719
  Receipt Date: 20100709
  Transmission Date: 20110219
  Serious: Yes (Other)
  Sender: FDA-Public Use
  Company Number: CH-WATSON-2010-09245

PATIENT
  Age: 52 Year
  Sex: Female

DRUGS (2)
  1. HYDROMORPHONE HYDROCHLORIDE (WATSON LABORATORIES) [Suspect]
     Indication: BACK PAIN
     Dosage: 10 MG PER ML
     Route: 037
     Dates: start: 20080101
  2. MORPHINE SULFATE INJ [Suspect]
     Indication: BACK PAIN
     Dosage: 7 MG DAILY
     Route: 037
     Dates: start: 20050801

REACTIONS (1)
  - GRANULOMA [None]
